FAERS Safety Report 6891884-6 (Version None)
Quarter: 2010Q3

REPORT INFORMATION
  Report Type: 
  Country: None (occurrence: None)
  Receive Date: 20100731
  Receipt Date: 20071126
  Transmission Date: 20110219
  Serious: No
  Sender: FDA-Public Use
  Company Number: US-PFIZER INC-2007092643

PATIENT
  Sex: Female

DRUGS (2)
  1. NORVASC [Suspect]
  2. ANTIHYPERTENSIVES [Suspect]

REACTIONS (5)
  - DIZZINESS [None]
  - LISTLESS [None]
  - PAIN IN EXTREMITY [None]
  - POLLAKIURIA [None]
  - UNEVALUABLE EVENT [None]
